FAERS Safety Report 7781554-4 (Version None)
Quarter: 2011Q3

REPORT INFORMATION
  Report Type: 
  Country: None (occurrence: None)
  Receive Date: 20110923
  Receipt Date: 20110908
  Transmission Date: 20111222
  Serious: Yes (Life-Threatening, Hospitalization)
  Sender: FDA-Public Use
  Company Number: 2011AP002007

PATIENT
  Age: 79 Year
  Sex: Female

DRUGS (13)
  1. BISOPROLOL FUMARATE [Concomitant]
  2. CITALOPRAM HYDROBROMIDE [Concomitant]
  3. ACETAMINOPHEN [Concomitant]
  4. PERINDOPRIL ERBUMINE [Concomitant]
  5. ZOLPIDEM [Concomitant]
  6. LAMOTRIGINE [Suspect]
     Indication: CONVULSION
     Dosage: 25 MG; PO;BID, 50 MG;PO, BID
     Route: 048
     Dates: start: 20110806, end: 20110822
  7. TRAVOPROST (TRAVOPROST) [Concomitant]
  8. ASPIRIN [Concomitant]
  9. OMEPRAZOLE [Concomitant]
  10. PHENYTOIN [Concomitant]
  11. ADCAL D3 (LEKOVIT CA) [Concomitant]
  12. BENDROFLUMETHIAZIDE (BENDROFLUMETHIAZIDE) [Concomitant]
  13. ACETAMINOPHEN W/ CODEINE [Concomitant]

REACTIONS (8)
  - NEUTROPENIC SEPSIS [None]
  - PYREXIA [None]
  - PLATELET COUNT DECREASED [None]
  - SKIN WARM [None]
  - PALLOR [None]
  - HAEMOGLOBIN DECREASED [None]
  - RASH ERYTHEMATOUS [None]
  - ESCHERICHIA SEPSIS [None]
